FAERS Safety Report 7939143-4 (Version None)
Quarter: 2011Q4

REPORT INFORMATION
  Report Type: 
  Country: None (occurrence: None)
  Receive Date: 20111124
  Receipt Date: 20111115
  Transmission Date: 20120403
  Serious: Yes (Other)
  Sender: FDA-Public Use
  Company Number: FR-ROCHE-1015013

PATIENT
  Age: 56 Year
  Sex: Female

DRUGS (2)
  1. PACLITAXEL [Suspect]
     Indication: BREAST CANCER
  2. AVASTIN [Suspect]
     Indication: BREAST CANCER

REACTIONS (1)
  - PALMAR-PLANTAR ERYTHRODYSAESTHESIA SYNDROME [None]
